FAERS Safety Report 9414873 (Version 2)
Quarter: 2013Q3

REPORT INFORMATION
  Report Type: Spontaneous
  Country: JP (occurrence: JP)
  Receive Date: 20130723
  Receipt Date: 20130806
  Transmission Date: 20140515
  Serious: Yes (Death, Hospitalization)
  Sender: FDA-Public Use
  Company Number: JP-JNJFOC-20130713630

PATIENT
  Age: 83 Year
  Sex: Male

DRUGS (5)
  1. TRAMCET [Suspect]
     Indication: PAIN
     Dosage: ONCE DAILY
     Route: 048
     Dates: start: 20130226, end: 20130301
  2. TRAMCET [Suspect]
     Indication: PAIN
     Dosage: ONCE DAILY
     Route: 048
     Dates: start: 20130304
  3. TRAMCET [Suspect]
     Indication: PAIN
     Dosage: ONCE DAILY
     Route: 048
     Dates: start: 20130302, end: 20130303
  4. LOXONIN [Concomitant]
     Indication: PAIN
     Dosage: 1 PER 1 DAY
     Route: 048
     Dates: start: 201302
  5. RINGEREAZE [Concomitant]
     Indication: PAIN
     Dosage: 1 PER 1 DAY
     Route: 048
     Dates: start: 20130226

REACTIONS (1)
  - Interstitial lung disease [Fatal]
